FAERS Safety Report 9912689 (Version 1)
Quarter: 2014Q1

REPORT INFORMATION
  Report Type: Spontaneous
  Country: US (occurrence: US)
  Receive Date: 20140220
  Receipt Date: 20140220
  Transmission Date: 20141002
  Serious: Yes (Other)
  Sender: FDA-Public Use
  Company Number: US-AMGEN-USASP2014011337

PATIENT
  Age: 81 Year
  Sex: Female

DRUGS (6)
  1. PROLIA [Suspect]
     Indication: OSTEOPOROSIS POSTMENOPAUSAL
     Dosage: UNK UNK, Q6MO
     Route: 065
     Dates: start: 201302
  2. ASPIRIN [Concomitant]
     Dosage: 1 QUARTER TABLET
  3. COREG [Concomitant]
  4. SPIRONOLACTONE [Concomitant]
  5. LOVASTATIN [Concomitant]
  6. POTASSIUM [Concomitant]

REACTIONS (3)
  - Tooth abscess [Unknown]
  - Dental fistula [Unknown]
  - Tooth fracture [Unknown]
